FAERS Safety Report 5281488-3 (Version None)
Quarter: 2007Q1

REPORT INFORMATION
  Report Type: 
  Country: None (occurrence: None)
  Receive Date: 20070323
  Receipt Date: 20070323
  Transmission Date: 20070707
  Serious: Yes (Other)
  Sender: FDA-Public Use
  Company Number: None

PATIENT
  Sex: Female
  Weight: 62.1428 kg

DRUGS (1)
  1. LIDOCAINE [Suspect]

REACTIONS (4)
  - HEART RATE INCREASED [None]
  - HEART RATE IRREGULAR [None]
  - HYPERHIDROSIS [None]
  - SYNCOPE [None]
